FAERS Safety Report 7959111-6 (Version None)
Quarter: 2011Q4

REPORT INFORMATION
  Report Type: 
  Country: None (occurrence: None)
  Receive Date: 20111206
  Receipt Date: 20111206
  Transmission Date: 20120403
  Serious: Yes (Other)
  Sender: FDA-Public Use
  Company Number: None

PATIENT
  Age: 34 Year
  Sex: Female
  Weight: 176.9 kg

DRUGS (2)
  1. VITAMIN K1 [Suspect]
     Indication: INTERNATIONAL NORMALISED RATIO INCREASED
     Dosage: 1 SHOT
     Route: 030
     Dates: start: 20111129, end: 20111129
  2. VITAMIN K1 [Suspect]
     Indication: BLOOD THROMBOPLASTIN INCREASED
     Dosage: 1 SHOT
     Route: 030
     Dates: start: 20111129, end: 20111129

REACTIONS (4)
  - RASH PUSTULAR [None]
  - CONTUSION [None]
  - INJECTION SITE RASH [None]
  - RASH ERYTHEMATOUS [None]
